FAERS Safety Report 17310699 (Version 1)
Quarter: 2020Q1

REPORT INFORMATION
  Report Type: Spontaneous
  Country: US (occurrence: US)
  Receive Date: 20200123
  Receipt Date: 20200123
  Transmission Date: 20200409
  Serious: Yes (Other)
  Sender: FDA-Public Use
  Company Number: US-CELGENEUS-USA-20200106195

PATIENT
  Age: 54 Year
  Sex: Male

DRUGS (3)
  1. REVLIMID [Suspect]
     Active Substance: LENALIDOMIDE
     Indication: MONOCLONAL GAMMOPATHY
     Dosage: 25 MILLIGRAM
     Route: 048
     Dates: start: 201911
  2. VELCADE [Concomitant]
     Active Substance: BORTEZOMIB
     Indication: PRODUCT USED FOR UNKNOWN INDICATION
     Route: 065
  3. TETRAHYDROCANNABINOL [Concomitant]
     Active Substance: DRONABINOL
     Indication: PRODUCT USED FOR UNKNOWN INDICATION
     Route: 065

REACTIONS (8)
  - Urine flow decreased [Unknown]
  - Nasopharyngitis [Not Recovered/Not Resolved]
  - Hallucination [Unknown]
  - Pain [Unknown]
  - Dry skin [Unknown]
  - Incorrect dosage administered [Unknown]
  - Feeling abnormal [Unknown]
  - Amnesia [Unknown]

NARRATIVE: CASE EVENT DATE: 202001
